FAERS Safety Report 9958040 (Version 1)
Quarter: 2014Q1

REPORT INFORMATION
  Report Type: Report from Study
  Country: US (occurrence: US)
  Receive Date: 20140304
  Receipt Date: 20140304
  Transmission Date: 20141002
  Serious: No
  Sender: FDA-Public Use
  Company Number: US-ABBVIE-13P-163-1092689-00

PATIENT
  Sex: Female
  Weight: 59.02 kg

DRUGS (5)
  1. HUMIRA [Suspect]
     Indication: PSORIATIC ARTHROPATHY
     Route: 058
     Dates: start: 2012
  2. VITAMIN B [Concomitant]
     Indication: VITAMIN SUPPLEMENTATION
  3. VITAMIN C [Concomitant]
     Indication: VITAMIN SUPPLEMENTATION
  4. VITAMIN D [Concomitant]
     Indication: VITAMIN SUPPLEMENTATION
  5. MULTIVITAMIN [Concomitant]
     Indication: VITAMIN SUPPLEMENTATION

REACTIONS (2)
  - Gastroenteritis viral [Recovered/Resolved]
  - Influenza like illness [Recovered/Resolved]
